FAERS Safety Report 5629034-6 (Version None)
Quarter: 2008Q1

REPORT INFORMATION
  Report Type: 
  Country: None (occurrence: None)
  Receive Date: 20080216
  Receipt Date: 20080108
  Transmission Date: 20080703
  Serious: No
  Sender: FDA-Public Use
  Company Number: US-BAXTER-2008BH000011

PATIENT
  Age: 62 Year
  Sex: Male
  Weight: 87 kg

DRUGS (13)
  1. HEPARIN SODIUM [Suspect]
     Indication: THROMBOSIS PROPHYLAXIS
     Route: 042
     Dates: start: 20071226, end: 20071226
  2. HEPARIN SODIUM [Suspect]
     Route: 042
     Dates: start: 20071226, end: 20071226
  3. HEPARIN SODIUM [Suspect]
     Route: 042
     Dates: start: 20071228, end: 20071228
  4. HEPARIN SODIUM [Suspect]
     Route: 042
     Dates: start: 20071228, end: 20071228
  5. ASPIRIN [Concomitant]
     Indication: DRUG USE FOR UNKNOWN INDICATION
     Route: 065
  6. HUMALOG [Concomitant]
     Indication: DIABETES MELLITUS
     Route: 065
  7. LANOXIN [Concomitant]
     Indication: DRUG USE FOR UNKNOWN INDICATION
     Route: 048
  8. LANTUS [Concomitant]
     Indication: DRUG USE FOR UNKNOWN INDICATION
     Route: 065
  9. CLONIDINE HYDROCHLORIDE [Concomitant]
     Indication: DRUG USE FOR UNKNOWN INDICATION
     Route: 065
  10. METOPROLOL TARTRATE [Concomitant]
     Indication: DRUG USE FOR UNKNOWN INDICATION
     Route: 065
  11. PROTONIX [Concomitant]
     Indication: DRUG USE FOR UNKNOWN INDICATION
     Route: 065
  12. PROCARDIA XL [Concomitant]
     Indication: DRUG USE FOR UNKNOWN INDICATION
     Route: 065
  13. ARANESP [Concomitant]
     Indication: DRUG USE FOR UNKNOWN INDICATION
     Dosage: DOSE UNIT:UNKNOWN
     Route: 065

REACTIONS (4)
  - DIZZINESS [None]
  - HOT FLUSH [None]
  - MALAISE [None]
  - NAUSEA [None]
